FAERS Safety Report 4331571-1 (Version None)
Quarter: 2004Q1

REPORT INFORMATION
  Report Type: 
  Country: None (occurrence: None)
  Receive Date: 20040329
  Receipt Date: 20040315
  Transmission Date: 20041129
  Serious: Yes (Disabling, Other)
  Sender: FDA-Public Use
  Company Number: 2004-01076

PATIENT
  Age: 19 Year
  Sex: Female

DRUGS (2)
  1. MINOCYCLINE HYDROCHLORIDE [Suspect]
     Indication: ACNE
     Dosage: 100 MG, DAILY, ORAL
     Route: 048
     Dates: start: 20000201, end: 20040216
  2. ORAL CONTRACEPTIVE [Concomitant]

REACTIONS (8)
  - ARTHRALGIA [None]
  - FAECAL INCONTINENCE [None]
  - FATIGUE [None]
  - LUPUS-LIKE SYNDROME [None]
  - MYELITIS TRANSVERSE [None]
  - PARALYSIS [None]
  - RAYNAUD'S PHENOMENON [None]
  - URINARY INCONTINENCE [None]
